FAERS Safety Report 23347925 (Version 1)
Quarter: 2023Q4

REPORT INFORMATION
  Report Type: Spontaneous
  Country: IE (occurrence: IE)
  Receive Date: 20231228
  Receipt Date: 20231228
  Transmission Date: 20240110
  Serious: Yes (Other)
  Sender: FDA-Public Use
  Company Number: None

PATIENT
  Age: 47 Year
  Sex: Male

DRUGS (2)
  1. PREGABALIN [Suspect]
     Active Substance: PREGABALIN
     Indication: Drug withdrawal syndrome
     Dosage: QD (3-600 MG DAILY)
     Route: 048
  2. ALPRAZOLAM [Suspect]
     Active Substance: ALPRAZOLAM
     Indication: Product used for unknown indication
     Dosage: QD (20 TABLETS)
     Route: 048

REACTIONS (3)
  - Drug abuse [Recovered/Resolved]
  - Prescription drug used without a prescription [Recovered/Resolved]
  - Product use in unapproved indication [Recovered/Resolved]
